FAERS Safety Report 8572300-5 (Version None)
Quarter: 2012Q3

REPORT INFORMATION
  Report Type: 
  Country: None (occurrence: None)
  Receive Date: 20120806
  Receipt Date: 20120801
  Transmission Date: 20120928
  Serious: Yes (Hospitalization, Other)
  Sender: FDA-Public Use
  Company Number: US-B.I. PHARMACEUTICALS,INC./RIDGEFIELD-2011-BP-09682BP

PATIENT
  Sex: Female

DRUGS (2)
  1. LEVOTHYROXINE SODIUM [Concomitant]
     Indication: HYPOTHYROIDISM
     Route: 048
     Dates: start: 20010101
  2. SPIRIVA [Suspect]
     Indication: CHRONIC OBSTRUCTIVE PULMONARY DISEASE
     Dosage: 18 MCG
     Route: 055
     Dates: start: 20090301

REACTIONS (8)
  - RENAL CANCER [None]
  - THROAT TIGHTNESS [None]
  - DIAPHRAGM MUSCLE WEAKNESS [None]
  - ENDOCARDITIS NONINFECTIVE [None]
  - MUSCLE SPASMS [None]
  - SPEECH DISORDER [None]
  - DYSPNOEA [None]
  - PULMONARY FUNCTION TEST DECREASED [None]
